FAERS Safety Report 20200994 (Version 1)
Quarter: 2021Q4

REPORT INFORMATION
  Report Type: Report from Study
  Country: US (occurrence: US)
  Receive Date: 20211217
  Receipt Date: 20211217
  Transmission Date: 20220303
  Serious: Yes (Other)
  Sender: FDA-Public Use
  Company Number: US-TAKEDA-2021TUS079576

PATIENT
  Sex: Male

DRUGS (1)
  1. VORTIOXETINE [Suspect]
     Active Substance: VORTIOXETINE
     Indication: Product used for unknown indication
     Dosage: 20 MILLIGRAM
     Route: 048
     Dates: start: 20210907, end: 20211205

REACTIONS (5)
  - Surgery [Unknown]
  - Thrombosis [Unknown]
  - Peripheral swelling [Unknown]
  - Pain [Unknown]
  - Depression [Unknown]
